FAERS Safety Report 9550145 (Version 1)
Quarter: 2013Q3

REPORT INFORMATION
  Report Type: Report from Study
  Country: DE (occurrence: DE)
  Receive Date: 20130924
  Receipt Date: 20130924
  Transmission Date: 20140515
  Serious: Yes (Other)
  Sender: FDA-Public Use
  Company Number: DE-ABBVIE-13P-062-1150318-00

PATIENT
  Age: 54 Year
  Sex: Female
  Weight: 92 kg

DRUGS (1)
  1. HUMIRA [Suspect]
     Indication: PSORIASIS
     Route: 058
     Dates: start: 20111004

REACTIONS (3)
  - Diabetes mellitus [Unknown]
  - Periodontitis [Not Recovered/Not Resolved]
  - Bronchitis [Unknown]
